FAERS Safety Report 21525213 (Version 1)
Quarter: 2022Q4

REPORT INFORMATION
  Report Type: Spontaneous
  Country: JP (occurrence: JP)
  Receive Date: 20221030
  Receipt Date: 20221030
  Transmission Date: 20230113
  Serious: No
  Sender: FDA-Public Use
  Company Number: JP-JNJFOC-20221059808

PATIENT
  Age: 4 Decade
  Sex: Female
  Weight: 45 kg

DRUGS (37)
  1. TRACLEER [Suspect]
     Active Substance: BOSENTAN
     Indication: Pulmonary arterial hypertension
     Route: 048
     Dates: start: 2011, end: 2011
  2. TRACLEER [Suspect]
     Active Substance: BOSENTAN
     Route: 048
     Dates: start: 2011, end: 2011
  3. TRACLEER [Suspect]
     Active Substance: BOSENTAN
     Route: 048
     Dates: start: 2011, end: 2011
  4. EPOPROSTENOL [Suspect]
     Active Substance: EPOPROSTENOL
     Indication: Pulmonary arterial hypertension
     Dosage: 0.2NG/KG/MIN
     Route: 041
     Dates: start: 2011, end: 2011
  5. EPOPROSTENOL [Suspect]
     Active Substance: EPOPROSTENOL
     Dosage: 1NG/KG/MIN
     Route: 041
     Dates: start: 2011, end: 2011
  6. EPOPROSTENOL [Suspect]
     Active Substance: EPOPROSTENOL
     Dosage: 5NG/KG/MIN
     Route: 041
     Dates: start: 2011, end: 2011
  7. EPOPROSTENOL [Suspect]
     Active Substance: EPOPROSTENOL
     Dosage: 5.41NG/KG/MIN
     Route: 041
     Dates: start: 2011, end: 2011
  8. EPOPROSTENOL [Suspect]
     Active Substance: EPOPROSTENOL
     Dosage: DOSE UNKNOWN, GRADUALLY INCREASED
     Route: 041
     Dates: start: 2011, end: 2011
  9. EPOPROSTENOL [Suspect]
     Active Substance: EPOPROSTENOL
     Dosage: 10NG/KG/MIN
     Route: 041
     Dates: start: 2011
  10. EPOPROSTENOL [Suspect]
     Active Substance: EPOPROSTENOL
     Dosage: 10.12NG/KG/MIN
     Route: 041
  11. TADALAFIL [Concomitant]
     Active Substance: TADALAFIL
     Route: 048
     Dates: start: 2011
  12. SILDENAFIL CITRATE [Concomitant]
     Active Substance: SILDENAFIL CITRATE
     Route: 048
     Dates: start: 2011, end: 2011
  13. SILDENAFIL CITRATE [Concomitant]
     Active Substance: SILDENAFIL CITRATE
     Route: 048
     Dates: start: 2011
  14. PLATELETS [Concomitant]
     Active Substance: HUMAN PLATELET, ALLOGENIC
     Dosage: DOSE UNKNOWN
     Route: 065
     Dates: start: 2011
  15. DOBUTAMINE HYDROCHLORIDE [Concomitant]
     Active Substance: DOBUTAMINE HYDROCHLORIDE
     Dosage: DOSE UNKNOWN
     Route: 065
     Dates: start: 2011
  16. TOLVAPTAN [Concomitant]
     Active Substance: TOLVAPTAN
     Route: 048
     Dates: start: 2011
  17. PREDNISOLONE [Concomitant]
     Active Substance: PREDNISOLONE
     Indication: Pulmonary arterial hypertension
     Dosage: DOSE UNKNOWN
     Route: 065
  18. PREDNISOLONE [Concomitant]
     Active Substance: PREDNISOLONE
     Dosage: DOSE UNKNOWN, DOSE DECREASED
     Route: 065
  19. PREDNISOLONE [Concomitant]
     Active Substance: PREDNISOLONE
     Route: 065
     Dates: end: 201103
  20. PREDNISOLONE [Concomitant]
     Active Substance: PREDNISOLONE
     Route: 065
     Dates: start: 201103, end: 2011
  21. PREDNISOLONE [Concomitant]
     Active Substance: PREDNISOLONE
     Dosage: 100MG/3DAYS,PULSE THERAPY
     Route: 065
     Dates: start: 2011, end: 2011
  22. PREDNISOLONE [Concomitant]
     Active Substance: PREDNISOLONE
     Route: 065
     Dates: start: 2011, end: 2011
  23. PREDNISOLONE [Concomitant]
     Active Substance: PREDNISOLONE
     Route: 065
     Dates: start: 2011, end: 2011
  24. BETAMETHASONE [Concomitant]
     Active Substance: BETAMETHASONE
     Route: 065
     Dates: start: 2011, end: 2011
  25. BETAMETHASONE [Concomitant]
     Active Substance: BETAMETHASONE
     Route: 065
     Dates: start: 2011, end: 2011
  26. BETAMETHASONE [Concomitant]
     Active Substance: BETAMETHASONE
     Route: 065
     Dates: start: 2011, end: 2011
  27. BETAMETHASONE [Concomitant]
     Active Substance: BETAMETHASONE
     Route: 065
     Dates: start: 2011, end: 2011
  28. BETAMETHASONE [Concomitant]
     Active Substance: BETAMETHASONE
     Route: 065
     Dates: start: 2011
  29. TACROLIMUS [Concomitant]
     Active Substance: TACROLIMUS
     Route: 065
     Dates: start: 2011, end: 2011
  30. TACROLIMUS [Concomitant]
     Active Substance: TACROLIMUS
     Route: 065
     Dates: start: 2011, end: 2011
  31. TACROLIMUS [Concomitant]
     Active Substance: TACROLIMUS
     Route: 065
     Dates: start: 2011, end: 2011
  32. AMBRISENTAN [Concomitant]
     Active Substance: AMBRISENTAN
     Route: 048
     Dates: start: 2011
  33. OXYGEN [Concomitant]
     Active Substance: OXYGEN
     Dosage: 3L/MIN
     Route: 055
     Dates: start: 2011, end: 2011
  34. OXYGEN [Concomitant]
     Active Substance: OXYGEN
     Dosage: 5L/MIN
     Route: 055
     Dates: start: 2011, end: 2011
  35. OXYGEN [Concomitant]
     Active Substance: OXYGEN
     Dosage: 10L/MIN
     Route: 055
     Dates: start: 2011, end: 2011
  36. OXYGEN [Concomitant]
     Active Substance: OXYGEN
     Dosage: 2L/MIN
     Route: 055
     Dates: start: 2011, end: 2011
  37. OXYGEN [Concomitant]
     Active Substance: OXYGEN
     Dosage: 1L/MIN, AT NIGHT ONLY
     Route: 055
     Dates: start: 2011, end: 2011

REACTIONS (1)
  - Exposure during pregnancy [Recovered/Resolved]
